FAERS Safety Report 5891539-0 (Version None)
Quarter: 2008Q3

REPORT INFORMATION
  Report Type: 
  Country: None (occurrence: None)
  Receive Date: 20080922
  Receipt Date: 20080908
  Transmission Date: 20090109
  Serious: Yes (Other)
  Sender: FDA-Public Use
  Company Number: BR-ROCHE-585656

PATIENT
  Age: 69 Year
  Sex: Female

DRUGS (2)
  1. PEG-INTERFERON A-2A (RO 25-8310) [Suspect]
     Dosage: DOSAGE: 180 MCG WEEKLY
     Route: 058
  2. RIBAVIRIN [Suspect]
     Route: 048

REACTIONS (2)
  - ORAL CANDIDIASIS [None]
  - ORAL LICHEN PLANUS [None]
